FAERS Safety Report 6601731-5 (Version None)
Quarter: 2010Q1

REPORT INFORMATION
  Report Type: 
  Country: None (occurrence: None)
  Receive Date: 20100225
  Receipt Date: 20100219
  Transmission Date: 20100710
  Serious: Yes (Other)
  Sender: FDA-Public Use
  Company Number: FR-SANOFI-AVENTIS-2010SA009959

PATIENT
  Age: 82 Year
  Sex: Female

DRUGS (7)
  1. PLAVIX [Suspect]
     Indication: STENT PLACEMENT
     Route: 048
     Dates: start: 20100122
  2. PLAVIX [Suspect]
     Route: 048
     Dates: start: 20100202
  3. KARDEGIC [Concomitant]
     Indication: ARRHYTHMIA
     Route: 048
  4. PREVISCAN [Concomitant]
     Indication: ARRHYTHMIA
  5. LASILIX [Concomitant]
     Indication: DRUG USE FOR UNKNOWN INDICATION
  6. NEURONTIN [Concomitant]
     Indication: DRUG USE FOR UNKNOWN INDICATION
  7. DI ANTALVIC [Concomitant]
     Indication: DRUG USE FOR UNKNOWN INDICATION

REACTIONS (4)
  - ABASIA [None]
  - BACK PAIN [None]
  - FATIGUE [None]
  - INTERNATIONAL NORMALISED RATIO INCREASED [None]
